FAERS Safety Report 17350608 (Version 2)
Quarter: 2020Q1

REPORT INFORMATION
  Report Type: Spontaneous
  Country: US (occurrence: US)
  Receive Date: 20200130
  Receipt Date: 20200220
  Transmission Date: 20200409
  Serious: Yes (Life-Threatening, Hospitalization, Other)
  Sender: FDA-Public Use
  Company Number: US-AUROBINDO-AUR-APL-2020-004576

PATIENT
  Age: 37 Year
  Sex: Female

DRUGS (2)
  1. BUPIVACAINE HYDROCHLORIDE 0.5% (5 MG/ML) [Suspect]
     Active Substance: BUPIVACAINE HYDROCHLORIDE
     Indication: SPINAL ANAESTHESIA
     Dosage: 10 MILLIGRAM,HYPERBARIC
     Route: 065
  2. FENTANYL. [Suspect]
     Active Substance: FENTANYL
     Indication: SPINAL ANAESTHESIA
     Dosage: 25 MICROGRAM
     Route: 065

REACTIONS (5)
  - Peripartum cardiomyopathy [Recovering/Resolving]
  - Blood pressure immeasurable [Recovered/Resolved]
  - Bradycardia [Recovered/Resolved]
  - Maternal exposure during pregnancy [Recovering/Resolving]
  - Somnolence [Not Recovered/Not Resolved]
